FAERS Safety Report 14487374 (Version 1)
Quarter: 2018Q1

REPORT INFORMATION
  Report Type: Spontaneous
  Country: ES (occurrence: ES)
  Receive Date: 20180205
  Receipt Date: 20180205
  Transmission Date: 20180509
  Serious: Yes (Hospitalization)
  Sender: FDA-Public Use
  Company Number: ES-MYLANLABS-2018M1006656

PATIENT
  Sex: Female

DRUGS (1)
  1. FENTANYL. [Suspect]
     Active Substance: FENTANYL
     Indication: PRODUCT USED FOR UNKNOWN INDICATION
     Route: 062

REACTIONS (5)
  - Wrong dose [Recovered/Resolved]
  - Autonomic nervous system imbalance [Recovering/Resolving]
  - Delirium [Recovering/Resolving]
  - Respiratory disorder [Recovering/Resolving]
  - Drug administration error [Recovered/Resolved]
